FAERS Safety Report 8935578 (Version 2)
Quarter: 2012Q4

REPORT INFORMATION
  Report Type: 
  Country: AU (occurrence: AU)
  Receive Date: 20121130
  Receipt Date: 20121205
  Transmission Date: 20130627
  Serious: Yes (Hospitalization)
  Sender: FDA-Public Use
  Company Number: PHHY2012AU109544

PATIENT
  Age: 78 Year
  Sex: Female

DRUGS (2)
  1. ACLASTA [Suspect]
     Dosage: 5 mg, UNK
     Route: 042
     Dates: start: 20101214
  2. ACLASTA [Suspect]
     Dosage: 5 mg, UNK
     Route: 042
     Dates: start: 20111220

REACTIONS (2)
  - Fall [Recovering/Resolving]
  - Spinal fracture [Recovering/Resolving]
